FAERS Safety Report 8375584-1 (Version None)
Quarter: 2012Q2

REPORT INFORMATION
  Report Type: 
  Country: None (occurrence: None)
  Receive Date: 20120517
  Receipt Date: 20120517
  Transmission Date: 20120825
  Serious: Yes (Life-Threatening, Hospitalization)
  Sender: FDA-Public Use
  Company Number: None

PATIENT
  Age: 64 Year
  Sex: Female
  Weight: 76.2043 kg

DRUGS (6)
  1. FLUOROURACIL [Concomitant]
  2. OXALIPLATIN [Concomitant]
  3. DEXTROSE 5% [Concomitant]
  4. ELOXATIN [Suspect]
     Dosage: 148 MG EVERY 3 WEEKS IV DRIP
     Route: 041
     Dates: start: 20090727, end: 20120507
  5. ELOXATIN [Suspect]
     Dates: start: 20090727, end: 20120507
  6. LEUCOVORIN CALCIUM [Concomitant]

REACTIONS (5)
  - HYPERTENSION [None]
  - FLANK PAIN [None]
  - TACHYCARDIA [None]
  - HYPOXIA [None]
  - HYPOTENSION [None]
